FAERS Safety Report 12127694 (Version 2)
Quarter: 2016Q2

REPORT INFORMATION
  Report Type: Report from Study
  Country: US (occurrence: US)
  Receive Date: 20160229
  Receipt Date: 20160404
  Transmission Date: 20160815
  Serious: Yes (Death)
  Sender: FDA-Public Use
  Company Number: US-ACTELION-A-US2016-132010

PATIENT
  Age: 89 Year
  Sex: Female

DRUGS (1)
  1. MACITENTAN [Suspect]
     Active Substance: MACITENTAN
     Indication: PULMONARY HYPERTENSION
     Dosage: 10 MG, QD
     Route: 048
     Dates: start: 20150112, end: 20160202

REACTIONS (6)
  - Dyspnoea [Fatal]
  - Hypoxia [Fatal]
  - Heart rate irregular [Fatal]
  - Cardiac failure [Fatal]
  - Atrial fibrillation [Fatal]
  - Asthenia [Unknown]

NARRATIVE: CASE EVENT DATE: 20160202
